FAERS Safety Report 21112991 (Version 7)
Quarter: 2024Q3

REPORT INFORMATION
  Report Type: Report from Study
  Country: DE (occurrence: DE)
  Receive Date: 20220721
  Receipt Date: 20240813
  Transmission Date: 20241017
  Serious: Yes (Hospitalization, Other)
  Sender: TAKEDA
  Company Number: DE-TAKEDA-2021TUS050750

PATIENT
  Age: 30 Year
  Sex: Male

DRUGS (6)
  1. VEDOLIZUMAB [Suspect]
     Active Substance: VEDOLIZUMAB
     Indication: Colitis ulcerative
     Dosage: 300 MILLIGRAM
     Route: 065
     Dates: start: 201802
  2. VEDOLIZUMAB [Suspect]
     Active Substance: VEDOLIZUMAB
     Indication: Crohn^s disease
  3. VEDOLIZUMAB [Suspect]
     Active Substance: VEDOLIZUMAB
     Indication: Colitis ulcerative
     Dosage: 108 MILLIGRAM
     Route: 058
     Dates: start: 20210510
  4. VEDOLIZUMAB [Suspect]
     Active Substance: VEDOLIZUMAB
     Indication: Crohn^s disease
  5. URSODIOL [Concomitant]
     Active Substance: URSODIOL
     Indication: Cholangitis sclerosing
     Dosage: 1000 MILLIGRAM
     Route: 048
     Dates: start: 201711
  6. Salofalk [Concomitant]
     Indication: Colitis ulcerative
     Dosage: 3 GRAM
     Route: 048
     Dates: start: 201802

REACTIONS (4)
  - Cholestasis [Not Recovered/Not Resolved]
  - Bile duct stenosis [Recovering/Resolving]
  - Cholangitis sclerosing [Recovering/Resolving]
  - Injection site irritation [Recovering/Resolving]

NARRATIVE: CASE EVENT DATE: 20210719
